FAERS Safety Report 14053514 (Version 2)
Quarter: 2018Q1

REPORT INFORMATION
  Report Type: Report from Study
  Country: US (occurrence: US)
  Receive Date: 20171006
  Receipt Date: 20180216
  Transmission Date: 20180508
  Serious: No
  Sender: FDA-Public Use
  Company Number: PHEH2017US032069

PATIENT
  Sex: Female

DRUGS (1)
  1. COSENTYX [Suspect]
     Active Substance: SECUKINUMAB
     Indication: PSORIASIS
     Dosage: 300 MG/KG, QMO
     Route: 058

REACTIONS (5)
  - Abdominal discomfort [Unknown]
  - Drug ineffective [Unknown]
  - Injection site pain [Unknown]
  - Injection site haemorrhage [Unknown]
  - Psoriasis [Unknown]
